FAERS Safety Report 6731320-3 (Version None)
Quarter: 2010Q2

REPORT INFORMATION
  Report Type: 
  Country: None (occurrence: None)
  Receive Date: 20100517
  Receipt Date: 20100517
  Transmission Date: 20101027
  Serious: Yes (Disabling, Other)
  Sender: FDA-Public Use
  Company Number: None

PATIENT
  Sex: Male
  Weight: 36.2878 kg

DRUGS (2)
  1. BUSPAR [Suspect]
     Indication: BIPOLAR DISORDER
     Dosage: 10MG 2XDAY PO
     Route: 048
     Dates: start: 20100508, end: 20100514
  2. BUSPAR [Suspect]
     Indication: HEADACHE
     Dosage: 10MG 2XDAY PO
     Route: 048
     Dates: start: 20100508, end: 20100514

REACTIONS (7)
  - ABASIA [None]
  - DIZZINESS [None]
  - FEELING ABNORMAL [None]
  - HEADACHE [None]
  - HYPOAESTHESIA [None]
  - PAIN IN EXTREMITY [None]
  - WITHDRAWAL SYNDROME [None]
